FAERS Safety Report 5141862-2 (Version None)
Quarter: 2006Q4

REPORT INFORMATION
  Report Type: 
  Country: None (occurrence: None)
  Receive Date: 20061026
  Receipt Date: 20061020
  Transmission Date: 20070319
  Serious: Yes (Death, Life-Threatening)
  Sender: FDA-Public Use
  Company Number: HQWYE431723OCT06

PATIENT
  Age: 48 Year
  Sex: Male

DRUGS (7)
  1. MYLOTARG [Suspect]
     Indication: ACUTE MYELOID LEUKAEMIA
     Dosage: 9 MG/M^2 1X PER 1 DAY INTRAVENOUS DRIP; SEE IMAGE
     Route: 041
     Dates: start: 20060710, end: 20060710
  2. MYLOTARG [Suspect]
     Indication: ACUTE MYELOID LEUKAEMIA
     Dosage: 9 MG/M^2 1X PER 1 DAY INTRAVENOUS DRIP; SEE IMAGE
     Route: 041
     Dates: start: 20060724, end: 20060724
  3. FIRSTCIN (CEFOZOPRAN HYDROCHLORIDE) [Concomitant]
  4. FUTHAN (NAFAMOSTAT MESILATE) [Concomitant]
  5. DIFLUCAN [Concomitant]
  6. TIENAM (CILASTATIN/IMIPENEM) [Concomitant]
  7. AMIKACIN SULFATE [Concomitant]

REACTIONS (8)
  - ACUTE MYELOID LEUKAEMIA [None]
  - HYPERCOAGULATION [None]
  - HYPOALBUMINAEMIA [None]
  - HYPOKALAEMIA [None]
  - HYPOPROTEINAEMIA [None]
  - MALIGNANT NEOPLASM PROGRESSION [None]
  - NEUTROPENIA [None]
  - PNEUMONIA [None]
